FAERS Safety Report 5944190-8 (Version None)
Quarter: 2008Q4

REPORT INFORMATION
  Report Type: 
  Country: None (occurrence: None)
  Receive Date: 20081104
  Receipt Date: 20081020
  Transmission Date: 20090506
  Serious: Yes (Hospitalization)
  Sender: FDA-Public Use
  Company Number: CLOF-10445

PATIENT
  Age: 9 Year
  Sex: Female
  Weight: 23 kg

DRUGS (13)
  1. CLOFARABINE (CLOFARABINE) [Suspect]
     Indication: ACUTE MYELOID LEUKAEMIA
     Dosage: 27 MG, QDX5, INTRAVENOUS;  27 MG, QD, INTRAVENOUS
     Route: 042
     Dates: start: 20061121, end: 20061125
  2. CLOFARABINE (CLOFARABINE) [Suspect]
     Indication: ACUTE MYELOID LEUKAEMIA
     Dosage: 27 MG, QDX5, INTRAVENOUS;  27 MG, QD, INTRAVENOUS
     Route: 042
     Dates: start: 20070119, end: 20070123
  3. ETOPOSIDE [Concomitant]
     Indication: ACUTE MYELOID LEUKAEMIA
     Dosage: 90 MG, QDX5, INTRAVENOUS;  90 MG, QD, INTRAVENOUS
     Route: 042
     Dates: start: 20061121, end: 20061125
  4. ETOPOSIDE [Concomitant]
     Indication: ACUTE MYELOID LEUKAEMIA
     Dosage: 90 MG, QDX5, INTRAVENOUS;  90 MG, QD, INTRAVENOUS
     Route: 042
     Dates: start: 20070119, end: 20070123
  5. CYCLOPHOSPHAMIDE [Suspect]
     Indication: ACUTE MYELOID LEUKAEMIA
     Dosage: 400 MG, QDX5, INTRAVENOUS;  400 MG, QD, INTRAVENOUS
     Route: 042
     Dates: start: 20061121, end: 20061125
  6. CYCLOPHOSPHAMIDE [Suspect]
     Indication: ACUTE MYELOID LEUKAEMIA
     Dosage: 400 MG, QDX5, INTRAVENOUS;  400 MG, QD, INTRAVENOUS
     Route: 042
     Dates: start: 20070119, end: 20070123
  7. VORICONAZOLE (VORICONAZOLE) [Concomitant]
  8. BACTRIM [Concomitant]
  9. POTASSIUM CHLORIDE [Concomitant]
  10. SENNA (SENNA ALEXANDRINA) [Concomitant]
  11. FILGRASTIM (FILGRASTIM) [Concomitant]
  12. PERIACTIN [Concomitant]
  13. CYTARABINE [Concomitant]

REACTIONS (15)
  - ALPHA HAEMOLYTIC STREPTOCOCCAL INFECTION [None]
  - ATELECTASIS [None]
  - BACTERAEMIA [None]
  - BACTERIAL CULTURE POSITIVE [None]
  - CANDIDIASIS [None]
  - CENTRAL NERVOUS SYSTEM INFECTION [None]
  - CEREBRAL FUNGAL INFECTION [None]
  - FATIGUE [None]
  - HYPOPHAGIA [None]
  - LUNG NEOPLASM [None]
  - OPPORTUNISTIC INFECTION [None]
  - PLEURAL FIBROSIS [None]
  - RESPIRATORY TRACT INFECTION FUNGAL [None]
  - RIB FRACTURE [None]
  - STOMATOCOCCAL INFECTION [None]
